FAERS Safety Report 5403203-2 (Version None)
Quarter: 2007Q3

REPORT INFORMATION
  Report Type: 
  Country: None (occurrence: None)
  Receive Date: 20070801
  Receipt Date: 20070720
  Transmission Date: 20080115
  Serious: Yes (Other)
  Sender: FDA-Public Use
  Company Number: US-PFIZER INC-2007062286

PATIENT
  Sex: Female
  Weight: 68 kg

DRUGS (11)
  1. CHANTIX [Suspect]
     Indication: SMOKING CESSATION THERAPY
     Dates: start: 20070524, end: 20070526
  2. DILANTIN KAPSEAL [Suspect]
     Indication: CONVULSION
     Dates: start: 20060306, end: 20070524
  3. ZOLOFT [Suspect]
     Indication: DEPRESSION
  4. LAMICTAL [Suspect]
     Indication: CONVULSION
     Dosage: DAILY DOSE:500MG
  5. TOPAMAX [Suspect]
  6. KEPPRA [Concomitant]
  7. TOPROL-XL [Concomitant]
  8. HYDROCHLOROTHIAZIDE [Concomitant]
  9. CRESTOR [Concomitant]
  10. ACTOS [Concomitant]
  11. MULTIVITAMIN [Concomitant]

REACTIONS (5)
  - CONVULSION [None]
  - FALL [None]
  - GRAND MAL CONVULSION [None]
  - HEAD INJURY [None]
  - SUICIDAL IDEATION [None]
